FAERS Safety Report 22167441 (Version 1)
Quarter: 2023Q2

REPORT INFORMATION
  Report Type: Spontaneous
  Country: CZ (occurrence: CZ)
  Receive Date: 20230403
  Receipt Date: 20230403
  Transmission Date: 20230722
  Serious: Yes (Death, Hospitalization, Other)
  Sender: FDA-Public Use
  Company Number: CZ-KOREA IPSEN Pharma-2023-07886

PATIENT
  Age: 61 Year
  Sex: Male
  Weight: 50 kg

DRUGS (3)
  1. BOTULINUM TOXIN TYPE A [Suspect]
     Active Substance: BOTULINUM TOXIN TYPE A
     Indication: Myoclonus
     Dosage: SINGLE CYCLE
     Route: 065
  2. BOTULINUM TOXIN TYPE A [Suspect]
     Active Substance: BOTULINUM TOXIN TYPE A
     Indication: Salivary hypersecretion
  3. BOTULINUM TOXIN TYPE A [Suspect]
     Active Substance: BOTULINUM TOXIN TYPE A
     Indication: Off label use

REACTIONS (9)
  - Respiratory failure [Fatal]
  - Cachexia [Unknown]
  - Abulia [Unknown]
  - Infection [Unknown]
  - Disease progression [Unknown]
  - Malnutrition [Unknown]
  - Myoclonus [Unknown]
  - Hyperexplexia [Unknown]
  - Off label use [Unknown]
